FAERS Safety Report 7966637-8 (Version None)
Quarter: 2011Q4

REPORT INFORMATION
  Report Type: 
  Country: None (occurrence: None)
  Receive Date: 20111209
  Receipt Date: 20110131
  Transmission Date: 20120403
  Serious: No
  Sender: FDA-Public Use
  Company Number: US-BIOGENIDEC-2011BI006852

PATIENT
  Age: 52 Year
  Sex: Female

DRUGS (1)
  1. TYSABRI [Suspect]
     Indication: MULTIPLE SCLEROSIS
     Route: 042
     Dates: start: 20110120

REACTIONS (6)
  - PRURITUS [None]
  - HEADACHE [None]
  - URTICARIA [None]
  - BACK PAIN [None]
  - INFLUENZA LIKE ILLNESS [None]
  - ARTHRALGIA [None]
